FAERS Safety Report 9616298 (Version 1)
Quarter: 2013Q4

REPORT INFORMATION
  Report Type: Spontaneous
  Country: US (occurrence: None)
  Receive Date: 20131010
  Receipt Date: 20131010
  Transmission Date: 20140711
  Serious: Yes (Hospitalization)
  Sender: FDA-Public Use
  Company Number: None

PATIENT
  Age: 81 Year
  Sex: Male
  Weight: 68.2 kg

DRUGS (3)
  1. BENDAMUSTINE HYDROCHLORIDE [Suspect]
  2. PS-341- (BORTEZOMIB VELCADE) [Suspect]
  3. RITUXIMAB (MOAB C2B8 ANTI CD20, CHIMERIC) [Suspect]

REACTIONS (13)
  - Pruritus [None]
  - Lacrimation increased [None]
  - Stomatitis [None]
  - Rash [None]
  - Swelling [None]
  - Erythema [None]
  - Oedema mouth [None]
  - Swelling face [None]
  - Lip swelling [None]
  - Mucosal inflammation [None]
  - Dysphagia [None]
  - Oropharyngeal pain [None]
  - Hypophagia [None]
